FAERS Safety Report 9257491 (Version 1)
Quarter: 2013Q1

REPORT INFORMATION
  Report Type: Spontaneous
  Country: US (occurrence: None)
  Receive Date: 20121212
  Receipt Date: 20121212
  Transmission Date: 20140127
  Serious: No
  Sender: FDA-Public Use
  Company Number: 1208USA003436

PATIENT
  Age: 65 Year
  Sex: Male

DRUGS (3)
  1. VICTRELIS [Suspect]
     Indication: HEPATITIS C
     Dates: start: 20120721
  2. RIBAVIRIN [Suspect]
     Indication: HEPATITIS C
     Dates: start: 20120622
  3. PEGASYS [Suspect]
     Indication: HEPATITIS C
     Dates: start: 20120622

REACTIONS (7)
  - Lethargy [None]
  - Somnolence [None]
  - Insomnia [None]
  - Pyrexia [None]
  - Hyperhidrosis [None]
  - Dizziness [None]
  - Accidental overdose [None]
